FAERS Safety Report 5917561-3 (Version None)
Quarter: 2008Q4

REPORT INFORMATION
  Report Type: 
  Country: None (occurrence: None)
  Receive Date: 20081010
  Receipt Date: 20081010
  Transmission Date: 20090506
  Serious: Yes (Other)
  Sender: FDA-Public Use
  Company Number: None

PATIENT
  Age: 46 Year
  Sex: Male
  Weight: 93.8946 kg

DRUGS (1)
  1. FLOMAX [Suspect]
     Indication: RESIDUAL URINE
     Dosage: 1 AT NIGHT DAILY
     Dates: start: 20080910, end: 20081009

REACTIONS (1)
  - HAEMORRHOIDS [None]
